FAERS Safety Report 6274403-7 (Version None)
Quarter: 2009Q3

REPORT INFORMATION
  Report Type: 
  Country: None (occurrence: None)
  Receive Date: 20090716
  Receipt Date: 20090626
  Transmission Date: 20100115
  Serious: Yes (Other)
  Sender: FDA-Public Use
  Company Number: 2009-199757-NL

PATIENT
  Age: 46 Year
  Sex: Female
  Weight: 79.4 kg

DRUGS (1)
  1. IMPLANON [Suspect]
     Indication: CONTRACEPTION
     Dosage: SUBDERMAL
     Route: 059
     Dates: start: 20090608

REACTIONS (2)
  - DEVICE BREAKAGE [None]
  - NEPHROLITHIASIS [None]
